FAERS Safety Report 9103023 (Version 2)
Quarter: 2013Q4

REPORT INFORMATION
  Report Type: Report from Study
  Country: PL (occurrence: PL)
  Receive Date: 20130218
  Receipt Date: 20131211
  Transmission Date: 20140711
  Serious: Yes (Hospitalization)
  Sender: FDA-Public Use
  Company Number: PL-SHIRE-ALL1-2013-00831

PATIENT
  Age: 14 Year
  Sex: Male

DRUGS (14)
  1. IDURSULFASE [Suspect]
     Indication: MUCOPOLYSACCHARIDOSIS II
     Dosage: 12 MG, 1X/WEEK
     Route: 041
     Dates: start: 20091027
  2. KEPPRA [Concomitant]
     Indication: NERVOUS SYSTEM DISORDER
     Dosage: 8 ML, 2X/DAY:BID
     Route: 048
     Dates: start: 201008
  3. CARBAMAZEPIN [Concomitant]
     Indication: NERVOUS SYSTEM DISORDER
     Dosage: 375 MG, 2X/DAY:BID
     Route: 048
     Dates: start: 20100714
  4. SOYFEM [Concomitant]
     Indication: CARDIOVASCULAR DISORDER
     Dosage: 5 DF, 1X/DAY:QD
     Route: 048
     Dates: start: 20100714
  5. DIAZEPAMUM [Concomitant]
     Indication: NERVOUS SYSTEM DISORDER
     Dosage: 10 MG, AS REQ^D
     Route: 054
     Dates: start: 20100714
  6. DIAZEPAMUM [Concomitant]
     Dosage: UNK UNK, UNKNOWN
     Route: 065
     Dates: start: 20100705, end: 20100705
  7. CLEMASTINE [Concomitant]
     Indication: PREMEDICATION
     Dosage: UNK, UNKNOWN
     Route: 065
     Dates: start: 20100518, end: 20100518
  8. CLEMASTINE [Concomitant]
     Dosage: UNK, UNKNOWN
     Route: 065
     Dates: start: 20100525, end: 20100525
  9. CLEMASTINE [Concomitant]
     Dosage: UNK, UNKNOWN
     Route: 065
     Dates: start: 20100601, end: 20100601
  10. CLEMASTINE [Concomitant]
     Dosage: UNK, UNKNOWN
     Route: 065
     Dates: start: 20100608, end: 20100608
  11. CLEMASTINE [Concomitant]
     Dosage: UNK, UNKNOWN
     Route: 065
     Dates: start: 20100615, end: 20100615
  12. CLEMASTINE [Concomitant]
     Dosage: UNK, UNKNOWN
     Route: 065
     Dates: start: 20100622, end: 20100622
  13. CLEMASTINE [Concomitant]
     Dosage: UNK, UNKNOWN
     Route: 065
     Dates: start: 20100629, end: 20100629
  14. CLEMASTINE [Concomitant]
     Dosage: UNK, UNKNOWN
     Route: 065
     Dates: start: 20100706, end: 20100706

REACTIONS (2)
  - Conjunctivitis [Recovered/Resolved]
  - Abscess of eyelid [Recovered/Resolved]
